FAERS Safety Report 16210153 (Version 1)
Quarter: 2019Q2

REPORT INFORMATION
  Report Type: Spontaneous
  Country: US (occurrence: US)
  Receive Date: 20190417
  Receipt Date: 20190417
  Transmission Date: 20190711
  Serious: Yes (Life-Threatening, Hospitalization, Other)
  Sender: FDA-Public Use
  Company Number: US-BAXTER-2019BAX007485

PATIENT
  Age: 89 Year
  Sex: Male

DRUGS (1)
  1. FUROSEMIDE INJECTION USP [Suspect]
     Active Substance: FUROSEMIDE
     Indication: DIASTOLIC DYSFUNCTION
     Route: 065

REACTIONS (3)
  - Pemphigoid [Unknown]
  - Acute respiratory failure [Unknown]
  - Septic shock [Unknown]
